FAERS Safety Report 6645528-9 (Version None)
Quarter: 2010Q1

REPORT INFORMATION
  Report Type: 
  Country: None (occurrence: None)
  Receive Date: 20100323
  Receipt Date: 20100226
  Transmission Date: 20100710
  Serious: No
  Sender: FDA-Public Use
  Company Number: US-BIOGENIDEC-2010BI006606

PATIENT
  Age: 60 Year
  Sex: Female

DRUGS (2)
  1. AVONEX [Suspect]
     Indication: MULTIPLE SCLEROSIS
     Route: 030
     Dates: start: 20100101
  2. IBUPROFEN [Concomitant]
     Indication: PREMEDICATION
     Dates: start: 20100101

REACTIONS (3)
  - ANXIETY [None]
  - COORDINATION ABNORMAL [None]
  - INFLUENZA LIKE ILLNESS [None]
